FAERS Safety Report 25312801 (Version 1)
Quarter: 2025Q2

REPORT INFORMATION
  Report Type: Report from Study
  Country: US (occurrence: US)
  Receive Date: 20250514
  Receipt Date: 20250514
  Transmission Date: 20250717
  Serious: No
  Sender: TRAVERE THERAPEUTICS
  Company Number: US-TRAVERE-2025TVT00615

PATIENT
  Age: 55 Year
  Sex: Male

DRUGS (12)
  1. FILSPARI [Suspect]
     Active Substance: SPARSENTAN
     Indication: IgA nephropathy
     Route: 048
     Dates: start: 202502
  2. FARXIGA [Suspect]
     Active Substance: DAPAGLIFLOZIN PROPANEDIOL
     Indication: Product used for unknown indication
  3. RITUXIMAB [Concomitant]
     Active Substance: RITUXIMAB
  4. TYLENOL [Concomitant]
     Active Substance: ACETAMINOPHEN
  5. LOKELMA [Concomitant]
     Active Substance: SODIUM ZIRCONIUM CYCLOSILICATE
  6. VELTASSA [Concomitant]
     Active Substance: PATIROMER
  7. ACTHAR [Concomitant]
     Active Substance: CORTICOTROPIN
  8. AMLODIPINE [Concomitant]
     Active Substance: AMLODIPINE BESYLATE
  9. ROSUVASTATIN [Concomitant]
     Active Substance: ROSUVASTATIN
  10. ULORIC [Concomitant]
     Active Substance: FEBUXOSTAT
  11. COLCHICINE [Concomitant]
     Active Substance: COLCHICINE
  12. FERROUS SULFATE [Concomitant]
     Active Substance: FERROUS SULFATE

REACTIONS (24)
  - Glucose urine present [Unknown]
  - Blood urine present [Unknown]
  - Protein urine present [Unknown]
  - Urine albumin/creatinine ratio increased [Unknown]
  - Blood iron decreased [Unknown]
  - Transferrin saturation decreased [Unknown]
  - Neutrophil count increased [Unknown]
  - Lymphocyte count decreased [Unknown]
  - Blood chloride increased [Unknown]
  - Blood urea increased [Unknown]
  - Blood creatinine increased [Unknown]
  - Blood calcium decreased [Unknown]
  - Glomerular filtration rate decreased [Unknown]
  - White blood cell count increased [Unknown]
  - Red blood cell count decreased [Unknown]
  - Haemoglobin decreased [Unknown]
  - Haematocrit decreased [Unknown]
  - Neutrophil count increased [Unknown]
  - Urine protein/creatinine ratio increased [Unknown]
  - Blood glucose increased [Unknown]
  - Blood potassium increased [Unknown]
  - Blood pressure abnormal [Unknown]
  - Hyperparathyroidism secondary [Unknown]
  - Condition aggravated [Unknown]

NARRATIVE: CASE EVENT DATE: 20250203
